FAERS Safety Report 5427101-3 (Version None)
Quarter: 2007Q3

REPORT INFORMATION
  Report Type: 
  Country: None (occurrence: None)
  Receive Date: 20070823
  Receipt Date: 20070823
  Transmission Date: 20080115
  Serious: No
  Sender: FDA-Public Use
  Company Number: None

PATIENT

DRUGS (2)
  1. HEPARIN SODIUM [Suspect]
  2. HEPARIN SODIUM INJECTION [Suspect]

REACTIONS (1)
  - COAGULATION TIME SHORTENED [None]
